FAERS Safety Report 7018778-X (Version None)
Quarter: 2010Q3

REPORT INFORMATION
  Report Type: 
  Country: None (occurrence: None)
  Receive Date: 20100928
  Receipt Date: 20100927
  Transmission Date: 20110219
  Serious: Yes (Death)
  Sender: FDA-Public Use
  Company Number: PHHY2010US63827

PATIENT
  Sex: Male
  Weight: 108.84 kg

DRUGS (1)
  1. EXJADE [Suspect]
     Indication: MYELODYSPLASTIC SYNDROME
     Dosage: 2000MG/DAILY
     Route: 048
     Dates: start: 20100505

REACTIONS (1)
  - DEATH [None]
